FAERS Safety Report 21560503 (Version 3)
Quarter: 2022Q4

REPORT INFORMATION
  Report Type: Spontaneous
  Country: GB (occurrence: GB)
  Receive Date: 20221107
  Receipt Date: 20221214
  Transmission Date: 20230112
  Serious: Yes (Hospitalization)
  Sender: FDA-Public Use
  Company Number: GB-MYLANLABS-2022M1117980

PATIENT
  Age: 77 Year
  Sex: Male

DRUGS (2)
  1. CLOZARIL [Suspect]
     Active Substance: CLOZAPINE
     Indication: Schizophrenia
     Dosage: 125 MILLIGRAM, QD (PERMANENTLY STOP ON 01-NOV-2022)
     Route: 048
     Dates: start: 20030123, end: 20221018
  2. CLOZARIL [Suspect]
     Active Substance: CLOZAPINE
     Dosage: UNK
     Route: 048
     Dates: start: 20221027, end: 20221028

REACTIONS (6)
  - COVID-19 [Unknown]
  - Asthenia [Unknown]
  - Fall [Unknown]
  - Troponin increased [Unknown]
  - White blood cell count decreased [Unknown]
  - Therapy interrupted [Unknown]

NARRATIVE: CASE EVENT DATE: 20221018
